FAERS Safety Report 5904256-5 (Version None)
Quarter: 2008Q3

REPORT INFORMATION
  Report Type: 
  Country: None (occurrence: None)
  Receive Date: 20080909
  Receipt Date: 20080321
  Transmission Date: 20090109
  Serious: Yes (Other)
  Sender: FDA-Public Use
  Company Number: 163-20785-08031484

PATIENT
  Age: 58 Year
  Sex: Male

DRUGS (11)
  1. THALOMID [Suspect]
     Indication: GLIOMA
     Dosage: 100 FEQ, 2 IN 1 D, ORAL
     Route: 048
     Dates: start: 20071118, end: 20071124
  2. TEMOZOLOMIDE [Concomitant]
  3. QUETIAPINE FUMARATE [Concomitant]
  4. MIRTAZAPINE [Concomitant]
  5. TRAZODONE HCL [Concomitant]
  6. SIMVASTATIN [Concomitant]
  7. OMEPRAZOLE [Concomitant]
  8. ISOSORBIDE MONONITRATE [Concomitant]
  9. ATENOLOL [Concomitant]
  10. MORPHINE [Concomitant]
  11. NIACIN [Concomitant]

REACTIONS (4)
  - CHEST DISCOMFORT [None]
  - DYSPNOEA [None]
  - OEDEMA PERIPHERAL [None]
  - PSORIASIS [None]
